FAERS Safety Report 9833144 (Version 1)
Quarter: 2014Q1

REPORT INFORMATION
  Report Type: Spontaneous
  Country: US (occurrence: US)
  Receive Date: 20140121
  Receipt Date: 20140121
  Transmission Date: 20141002
  Serious: Yes (Other)
  Sender: FDA-Public Use
  Company Number: CHPA2014US000732

PATIENT
  Age: 39 Year
  Sex: Female

DRUGS (4)
  1. EXCEDRIN MIGRAINE [Suspect]
     Indication: PAIN
     Dosage: 1 TO 3 UNK, PRN
     Route: 048
  2. EXCEDRIN MIGRAINE [Suspect]
     Indication: MEDICAL DEVICE PAIN
  3. EXCEDRIN MIGRAINE [Suspect]
     Indication: OFF LABEL USE
  4. TYLENOL [Concomitant]
     Indication: PAIN

REACTIONS (7)
  - Temporomandibular joint syndrome [Not Recovered/Not Resolved]
  - Feeling abnormal [Unknown]
  - Medical device pain [Unknown]
  - Pain [Unknown]
  - Therapeutic response unexpected [Unknown]
  - Underdose [Unknown]
  - Incorrect dose administered [Unknown]
